FAERS Safety Report 4333960-8 (Version None)
Quarter: 2004Q2

REPORT INFORMATION
  Report Type: 
  Country: None (occurrence: None)
  Receive Date: 20040402
  Receipt Date: 20040322
  Transmission Date: 20050107
  Serious: Yes (Hospitalization)
  Sender: FDA-Public Use
  Company Number: 2004019729

PATIENT
  Age: 74 Year
  Sex: Male

DRUGS (6)
  1. OXYTETRACYCLINE [Suspect]
     Indication: FULGURATION
     Dosage: ORAL
     Route: 048
     Dates: end: 20040305
  2. BEZAFIBRATE (BEZAFIBRATE) [Concomitant]
  3. DILTIAZEM [Concomitant]
  4. ATENOLOL [Concomitant]
  5. ACETYLSALICYLIC ACID SRT [Concomitant]
  6. SIMVASTATIN [Concomitant]

REACTIONS (7)
  - ALANINE AMINOTRANSFERASE INCREASED [None]
  - BLOOD ALBUMIN DECREASED [None]
  - BLOOD ALKALINE PHOSPHATASE INCREASED [None]
  - BLOOD BILIRUBIN INCREASED [None]
  - CONFUSIONAL STATE [None]
  - INTERNATIONAL NORMALISED RATIO DECREASED [None]
  - LIVER FUNCTION TEST ABNORMAL [None]
